FAERS Safety Report 4928876-X (Version None)
Quarter: 2006Q1

REPORT INFORMATION
  Report Type: 
  Country: None (occurrence: None)
  Receive Date: 20060224
  Receipt Date: 20060214
  Transmission Date: 20060701
  Serious: Yes (Life-Threatening, Hospitalization)
  Sender: FDA-Public Use
  Company Number: DEWYE390714FEB06

PATIENT
  Age: 73 Year
  Sex: Male

DRUGS (3)
  1. RAPAMUNE [Suspect]
     Indication: PROPHYLAXIS AGAINST TRANSPLANT REJECTION
     Dosage: 203 MG
     Dates: start: 20050901, end: 20050901
  2. SANDIMMUNE [Concomitant]
  3. FOSINORM (FOSINOPRIL SODIUM) [Concomitant]

REACTIONS (6)
  - ANGIONEUROTIC OEDEMA [None]
  - CULTURE THROAT POSITIVE [None]
  - ESCHERICHIA INFECTION [None]
  - HAEMODIALYSIS [None]
  - NEPHROGENIC ANAEMIA [None]
  - RENAL FAILURE ACUTE [None]
